FAERS Safety Report 10879416 (Version 2)
Quarter: 2015Q1

REPORT INFORMATION
  Report Type: Spontaneous
  Country: US (occurrence: US)
  Receive Date: 20150302
  Receipt Date: 20150320
  Transmission Date: 20150721
  Serious: Yes (Other)
  Sender: FDA-Public Use
  Company Number: US-BAYER-2015-025956

PATIENT
  Age: 42 Year
  Sex: Female
  Weight: 58 kg

DRUGS (9)
  1. ATIVAN [Concomitant]
     Active Substance: LORAZEPAM
  2. GABAPENTIN. [Concomitant]
     Active Substance: GABAPENTIN
  3. PAXIL [Concomitant]
     Active Substance: PAROXETINE HYDROCHLORIDE
  4. SEROQUEL [Concomitant]
     Active Substance: QUETIAPINE FUMARATE
  5. ENALAPRIL [Concomitant]
     Active Substance: ENALAPRIL
  6. BAYER CHEWABLE LOW DOSE ASPIRIN ORANGE FLAVORED [Suspect]
     Active Substance: ASPIRIN
     Indication: ISCHAEMIC HEART DISEASE PROPHYLAXIS
     Dosage: 1 DF, QD
     Route: 048
     Dates: start: 2013, end: 2013
  7. XANAX [Concomitant]
     Active Substance: ALPRAZOLAM
  8. METOPROLOL [Concomitant]
     Active Substance: METOPROLOL
  9. TOPAMAX [Concomitant]
     Active Substance: TOPIRAMATE

REACTIONS (12)
  - Left ventricular dysfunction [Recovered/Resolved]
  - Dyspnoea [Recovered/Resolved]
  - Coagulopathy [Recovered/Resolved]
  - Cardiac failure congestive [Recovered/Resolved]
  - Blood pressure increased [Recovered/Resolved]
  - Dizziness [Recovered/Resolved]
  - Loss of consciousness [Recovered/Resolved]
  - Heart rate increased [Recovered/Resolved]
  - Heart rate increased [Recovered/Resolved]
  - Cardiomyopathy [Not Recovered/Not Resolved]
  - Hypoperfusion [Recovered/Resolved]
  - Dyspnoea [Recovered/Resolved]

NARRATIVE: CASE EVENT DATE: 2013
